FAERS Safety Report 7124591-5 (Version None)
Quarter: 2010Q4

REPORT INFORMATION
  Report Type: 
  Country: None (occurrence: None)
  Receive Date: 20101122
  Receipt Date: 20101122
  Transmission Date: 20110411
  Serious: Yes (Other)
  Sender: FDA-Public Use
  Company Number: None

PATIENT

DRUGS (1)
  1. AMITIZA [Suspect]

REACTIONS (2)
  - PRODUCT PACKAGING ISSUE [None]
  - PRODUCT QUALITY ISSUE [None]
